FAERS Safety Report 5943312-2 (Version None)
Quarter: 2008Q4

REPORT INFORMATION
  Report Type: 
  Country: None (occurrence: None)
  Receive Date: 20081106
  Receipt Date: 20081103
  Transmission Date: 20090506
  Serious: Yes (Death, Other)
  Sender: FDA-Public Use
  Company Number: PHBS2007IT17102

PATIENT
  Age: 44 Year
  Sex: Male

DRUGS (6)
  1. CYCLOSPORINE [Suspect]
     Indication: LIVER TRANSPLANT
     Dosage: 200 MG, BID
     Route: 065
  2. STEROIDS NOS [Concomitant]
     Indication: LIVER TRANSPLANT
     Dosage: 20 MG/D
  3. ATAZANAVIR SULFATE [Concomitant]
  4. LAMIVUDINE [Concomitant]
  5. TENOFOVIR [Concomitant]
  6. SIROLIMUS [Concomitant]
     Indication: KAPOSI'S SARCOMA

REACTIONS (5)
  - ASPERGILLOSIS [None]
  - DISEASE RECURRENCE [None]
  - HEPATITIS C [None]
  - HUMAN HERPESVIRUS 8 INFECTION [None]
  - KAPOSI'S SARCOMA [None]
